FAERS Safety Report 9827155 (Version 2)
Quarter: 2014Q1

REPORT INFORMATION
  Report Type: Other
  Country: FR (occurrence: FR)
  Receive Date: 20140117
  Receipt Date: 20140205
  Transmission Date: 20141002
  Serious: Yes (Hospitalization)
  Sender: FDA-Public Use
  Company Number: FR-FRI-1000052826

PATIENT
  Age: 82 Year
  Sex: Female

DRUGS (7)
  1. NEBIVOLOL [Suspect]
     Route: 048
     Dates: end: 201109
  2. OLMESARTAN [Suspect]
     Route: 048
     Dates: end: 201109
  3. AMAREL [Concomitant]
     Route: 048
  4. XELEVIA [Concomitant]
     Route: 048
  5. VASTAREL [Concomitant]
     Route: 048
  6. RIVOTRIL [Concomitant]
     Route: 048
  7. KLIPAL [Concomitant]
     Route: 048

REACTIONS (3)
  - Diarrhoea [Recovered/Resolved]
  - Weight decreased [Recovered/Resolved]
  - Steatorrhoea [Unknown]
